FAERS Safety Report 10785552 (Version 1)
Quarter: 2015Q1

REPORT INFORMATION
  Report Type: Spontaneous
  Country: GR (occurrence: GR)
  Receive Date: 20150211
  Receipt Date: 20150211
  Transmission Date: 20150721
  Serious: Yes (Other)
  Sender: FDA-Public Use
  Company Number: GR-MYLANLABS-2015M1002962

PATIENT

DRUGS (5)
  1. SOTALOL GENERICS 80 MG/TAB [Suspect]
     Active Substance: SOTALOL
     Indication: TACHYCARDIA
     Dosage: 1/4 TABLETS (TWICE DAILY)
     Route: 048
  2. T4 [Concomitant]
     Active Substance: LEVOTHYROXINE
     Indication: HYPOTHYROIDISM
     Dosage: 1 TABLET (ONCE DAILY)
     Route: 048
  3. SALOSPIR [Concomitant]
     Active Substance: ASPIRIN\CAFFEINE
     Indication: PROPHYLAXIS
     Dosage: 1 TABLET, QD
     Route: 048
  4. OMEGA-3 FATTY ACIDS [Concomitant]
     Active Substance: OMEGA-3 FATTY ACIDS
     Indication: PRODUCT USED FOR UNKNOWN INDICATION
     Dosage: UNK
     Route: 048
  5. HYALURONIC ACID [Concomitant]
     Active Substance: HYALURONIC ACID
     Indication: RHEUMATIC DISORDER
     Dosage: UNK
     Route: 048

REACTIONS (3)
  - Hypotension [Not Recovered/Not Resolved]
  - Chest pain [Not Recovered/Not Resolved]
  - Paraesthesia [Not Recovered/Not Resolved]
